FAERS Safety Report 4804939-4 (Version None)
Quarter: 2005Q4

REPORT INFORMATION
  Report Type: 
  Country: None (occurrence: None)
  Receive Date: 20051017
  Receipt Date: 20051004
  Transmission Date: 20060501
  Serious: Yes (Other)
  Sender: FDA-Public Use
  Company Number: A-US2005-10020

PATIENT
  Age: 10 Year
  Sex: Female
  Weight: 34.2 kg

DRUGS (2)
  1. ZAVESCA [Suspect]
     Indication: TAY-SACHS DISEASE
     Dosage: 100 MG, TID, ORAL
     Route: 048
     Dates: start: 20040828
  2. TEGRETOL [Concomitant]

REACTIONS (1)
  - CONVULSION [None]
